FAERS Safety Report 4492364-8 (Version None)
Quarter: 2004Q3

REPORT INFORMATION
  Report Type: 
  Country: None (occurrence: None)
  Receive Date: 20040921
  Receipt Date: 20030724
  Transmission Date: 20050211
  Serious: Yes (Death, Hospitalization)
  Sender: FDA-Public Use
  Company Number: 163-20785-03070583

PATIENT
  Age: 54 Year
  Sex: Male

DRUGS (9)
  1. THALOMID [Suspect]
     Dosage: SEE IMAGE
     Route: 048
     Dates: start: 19991029, end: 20000101
  2. THALOMID [Suspect]
     Dosage: SEE IMAGE
     Route: 048
     Dates: start: 20001201, end: 20010522
  3. THALOMID [Suspect]
     Dosage: SEE IMAGE
     Route: 048
     Dates: start: 20010523, end: 20020314
  4. DEXAMETHASONE [Suspect]
     Dosage: 40 MG, 4DAYS/WK
     Dates: start: 19991029, end: 20000101
  5. DEXAMETHASONE [Suspect]
     Dosage: 40 MG, 4DAYS/WK
     Dates: start: 20001201, end: 20020314
  6. CISPLATIN [Suspect]
     Dates: start: 19991029, end: 20020314
  7. ADRIAMYCIN PFS [Suspect]
     Dates: start: 19991029, end: 20020314
  8. CYCLOPHOSPHAMIDE [Suspect]
     Indication: MULTIPLE MYELOMA
     Dates: start: 19991029, end: 20020314
  9. ETOPOSIDE [Suspect]
     Indication: MULTIPLE MYELOMA
     Dates: start: 19991029, end: 20020314

REACTIONS (5)
  - DEATH [None]
  - DISEASE PROGRESSION [None]
  - NEUROPATHY [None]
  - NEUTROPENIA [None]
  - RENAL FAILURE [None]
